FAERS Safety Report 6046165-X (Version None)
Quarter: 2009Q1

REPORT INFORMATION
  Report Type: 
  Country: None (occurrence: None)
  Receive Date: 20090122
  Receipt Date: 20090115
  Transmission Date: 20090719
  Serious: Yes (Hospitalization)
  Sender: FDA-Public Use
  Company Number: FR-WYE-G02940109

PATIENT
  Sex: Female
  Weight: 15.5 kg

DRUGS (2)
  1. ADVIL [Suspect]
     Indication: PYREXIA
     Dosage: ONE SINGLE DOSE
     Route: 048
     Dates: start: 20081207, end: 20081207
  2. DOLIPRANE [Concomitant]
     Indication: PYREXIA
     Dosage: UNKNOWN
     Route: 048
     Dates: start: 20081207

REACTIONS (6)
  - CONDITION AGGRAVATED [None]
  - DIARRHOEA [None]
  - FACE OEDEMA [None]
  - INFECTION [None]
  - LYMPHADENITIS [None]
  - PHARYNGOTONSILLITIS [None]
